FAERS Safety Report 8739133 (Version 2)
Quarter: 2012Q4

REPORT INFORMATION
  Report Type: 
  Country: US (occurrence: US)
  Receive Date: 20120823
  Receipt Date: 20121002
  Transmission Date: 20130627
  Serious: Yes (Other)
  Sender: FDA-Public Use
  Company Number: US-BAYER-2012-085926

PATIENT
  Age: 33 Year
  Sex: Female
  Weight: 94.79 kg

DRUGS (1)
  1. MIRENA [Suspect]
     Indication: CONTRACEPTION
     Dosage: 20 mcg/24hr, CONT
     Route: 015
     Dates: start: 20120425, end: 20120731

REACTIONS (5)
  - Menorrhagia [None]
  - Dysfunctional uterine bleeding [None]
  - Device expulsion [None]
  - Asthma [None]
  - Type 2 diabetes mellitus [None]
